FAERS Safety Report 9915614 (Version 1)
Quarter: 2014Q1

REPORT INFORMATION
  Report Type: Spontaneous
  Country: SE (occurrence: None)
  Receive Date: 20140218
  Receipt Date: 20140218
  Transmission Date: 20141002
  Serious: Yes (Life-Threatening)
  Sender: FDA-Public Use
  Company Number: FK201400414

PATIENT
  Age: 9 Month
  Sex: Male

DRUGS (2)
  1. ROCURONIUMBROMID KABI 10 MG/ML (ROCURONIUM BROMIDE) (ROCURONIUM BROMIDE) [Suspect]
     Indication: PRODUCT USED FOR UNKNOWN INDICATION
     Dosage: INTRAVENOUS (NOT OTHERWISE SPECIFIED)?
     Route: 042
     Dates: start: 20140130, end: 20140130
  2. PROPOFOL LIPURO [Suspect]
     Indication: PRODUCT USED FOR UNKNOWN INDICATION

REACTIONS (4)
  - Hypersensitivity [None]
  - Erythema [None]
  - Blood pressure decreased [None]
  - Airway peak pressure increased [None]
